FAERS Safety Report 22938483 (Version 3)
Quarter: 2023Q4

REPORT INFORMATION
  Report Type: Report from Study
  Country: JP (occurrence: JP)
  Receive Date: 20230913
  Receipt Date: 20231122
  Transmission Date: 20240109
  Serious: Yes (Other)
  Sender: FDA-Public Use
  Company Number: JP-ASTELLAS-2023JP009584

PATIENT
  Age: 63 Year
  Sex: Male

DRUGS (18)
  1. ENFORTUMAB VEDOTIN [Suspect]
     Active Substance: ENFORTUMAB VEDOTIN
     Indication: Transitional cell carcinoma
     Route: 041
     Dates: start: 20220117, end: 20220131
  2. Oxinorm [Concomitant]
     Indication: Prophylaxis
     Dosage: 20 MG, AS NEEDED (WHEN IN PAIN)
     Route: 048
     Dates: start: 20220120, end: 20220129
  3. Oxinorm [Concomitant]
     Indication: Pain management
     Route: 048
  4. OXYCODONE [Concomitant]
     Active Substance: OXYCODONE
     Indication: Prophylaxis
     Route: 048
     Dates: start: 20220125, end: 20220129
  5. OXYCODONE [Concomitant]
     Active Substance: OXYCODONE
     Indication: Pain management
     Dosage: 20 MG/DAY, UNKNOWN FREQ.
     Route: 048
  6. OXYCODONE [Concomitant]
     Active Substance: OXYCODONE
     Indication: Product used for unknown indication
     Dosage: 40 MG/DAY, UNKNOWN FREQ.
     Route: 065
  7. CALONAL [Concomitant]
     Active Substance: ACETAMINOPHEN
     Indication: Product used for unknown indication
     Dosage: 1800 MG/DAY, UNKNOWN FREQ.
     Route: 065
  8. METFORMIN HYDROCHLORIDE [Concomitant]
     Active Substance: METFORMIN HYDROCHLORIDE
     Indication: Product used for unknown indication
     Dosage: 500 MG/DAY, UNKNOWN FREQ.
     Route: 065
  9. DAPAGLIFLOZIN [Concomitant]
     Active Substance: DAPAGLIFLOZIN
     Indication: Product used for unknown indication
     Dosage: 5 MG/DAY, UNKNOWN FREQ.
     Route: 065
  10. LINAGLIPTIN [Concomitant]
     Active Substance: LINAGLIPTIN
     Indication: Product used for unknown indication
     Dosage: 5 MG/DAY, UNKNOWN FREQ.
     Route: 065
  11. FEBUXOSTAT [Concomitant]
     Active Substance: FEBUXOSTAT
     Indication: Product used for unknown indication
     Dosage: 10 MG/DAY, UNKNOWN FREQ.
     Route: 065
  12. RABEPRAZOLE SODIUM [Concomitant]
     Active Substance: RABEPRAZOLE SODIUM
     Indication: Product used for unknown indication
     Dosage: 10 MG/DAY, UNKNOWN FREQ.
     Route: 065
  13. ATORVASTATIN CALCIUM TRIHYDRATE [Concomitant]
     Active Substance: ATORVASTATIN CALCIUM TRIHYDRATE
     Indication: Product used for unknown indication
     Dosage: 10 MG/DAY, UNKNOWN FREQ.
     Route: 065
  14. MAGNESIUM OXIDE [Concomitant]
     Active Substance: MAGNESIUM OXIDE
     Indication: Product used for unknown indication
     Dosage: 990 MG/DAY, UNKNOWN FREQ.
     Route: 065
  15. CALCIUM CARBONATE\CHOLECALCIFEROL\MAGNESIUM CARBONATE [Concomitant]
     Active Substance: CALCIUM CARBONATE\CHOLECALCIFEROL\MAGNESIUM CARBONATE
     Indication: Product used for unknown indication
     Dosage: 2 TABLETS/DAY, UNKNOWN FREQ.
     Route: 065
  16. SYMPROIC [Concomitant]
     Active Substance: NALDEMEDINE
     Indication: Product used for unknown indication
     Dosage: 0.2 MG/DAY, UNKNOWN FREQ.
     Route: 065
  17. FEXOFENADINE HYDROCHLORIDE [Concomitant]
     Active Substance: FEXOFENADINE HYDROCHLORIDE
     Indication: Product used for unknown indication
     Dosage: 60 MG/DAY, UNKNOWN FREQ.
     Route: 065
  18. LOXOPROFEN SODIUM [Concomitant]
     Active Substance: LOXOPROFEN SODIUM
     Indication: Product used for unknown indication
     Dosage: 100 MG/DAY, UNKNOWN FREQ.
     Route: 065

REACTIONS (1)
  - Immune-mediated enterocolitis [Recovering/Resolving]

NARRATIVE: CASE EVENT DATE: 20220125
